FAERS Safety Report 9116735 (Version 3)
Quarter: 2015Q2

REPORT INFORMATION
  Report Type: Spontaneous
  Country: US (occurrence: US)
  Receive Date: 20130225
  Receipt Date: 20150506
  Transmission Date: 20150821
  Serious: Yes (Hospitalization, Disabling)
  Sender: FDA-Public Use
  Company Number: US-ENDO PHARMACEUTICALS INC.-FORT20110013

PATIENT
  Age: 49 Year
  Sex: Male
  Weight: 115.32 kg

DRUGS (7)
  1. FORTESTA [Suspect]
     Active Substance: TESTOSTERONE
     Route: 061
  2. TESTOSTERONE CYPIONATE. [Suspect]
     Active Substance: TESTOSTERONE CYPIONATE
     Indication: BLOOD TESTOSTERONE DECREASED
     Route: 030
     Dates: start: 2013, end: 2014
  3. HYDROCODONE [Concomitant]
     Active Substance: HYDROCODONE
     Indication: BACK PAIN
     Route: 065
     Dates: start: 2009
  4. ANDROID [Suspect]
     Active Substance: METHYLTESTOSTERONE
     Indication: HYPOGONADISM
     Route: 048
     Dates: start: 20110316
  5. SIMVASTATIN. [Concomitant]
     Active Substance: SIMVASTATIN
     Indication: PRODUCT USED FOR UNKNOWN INDICATION
     Route: 065
     Dates: start: 2010
  6. FORTESTA [Suspect]
     Active Substance: TESTOSTERONE
     Indication: BLOOD TESTOSTERONE DECREASED
     Route: 061
     Dates: start: 20131016, end: 20140127
  7. CLONIDINE. [Concomitant]
     Active Substance: CLONIDINE
     Indication: HYPERTENSION
     Route: 065
     Dates: start: 2009

REACTIONS (4)
  - Skin exfoliation [Unknown]
  - Rash [Unknown]
  - Cerebrovascular accident [Not Recovered/Not Resolved]
  - Drug ineffective [Unknown]

NARRATIVE: CASE EVENT DATE: 20140118
